FAERS Safety Report 7878598-0 (Version None)
Quarter: 2011Q4

REPORT INFORMATION
  Report Type: 
  Country: None (occurrence: None)
  Receive Date: 20111101
  Receipt Date: 20111101
  Transmission Date: 20120403
  Serious: No
  Sender: FDA-Public Use
  Company Number: None

PATIENT
  Sex: Female
  Weight: 67.131 kg

DRUGS (1)
  1. TIMOLOL MALEATE [Suspect]
     Indication: INTRAOCULAR PRESSURE TEST ABNORMAL
     Dosage: ONE DROP IN BOTH EYES
     Route: 047
     Dates: start: 20110901, end: 20111030

REACTIONS (8)
  - FOREIGN BODY SENSATION IN EYES [None]
  - HEADACHE [None]
  - CHEST PAIN [None]
  - FATIGUE [None]
  - EYE DISORDER [None]
  - DYSPNOEA [None]
  - MUSCLE DISORDER [None]
  - EYE PAIN [None]
